FAERS Safety Report 10101422 (Version 1)
Quarter: 2014Q2

REPORT INFORMATION
  Report Type: Spontaneous
  Country: GB (occurrence: GB)
  Receive Date: 20140424
  Receipt Date: 20140424
  Transmission Date: 20141212
  Serious: Yes (Disabling, Other)
  Sender: FDA-Public Use
  Company Number: DE-ASTRAZENECA-2014SE27799

PATIENT
  Age: 59 Year
  Sex: Female
  Weight: 78 kg

DRUGS (5)
  1. OMEPRAZOLE [Suspect]
     Indication: GASTRITIS
     Route: 048
     Dates: start: 20140326, end: 20140331
  2. OMEPRAZOLE [Suspect]
     Indication: ULCER
     Route: 048
     Dates: start: 20140326, end: 20140331
  3. LANSOPRAZOLE [Concomitant]
     Indication: ULCER
     Route: 048
     Dates: start: 20140217, end: 20140314
  4. NUROFEN [Concomitant]
     Indication: ARTHRITIS
     Route: 048
     Dates: start: 2010, end: 20140222
  5. PARACETAMOL [Concomitant]
     Indication: ARTHRITIS
     Route: 048

REACTIONS (4)
  - Arthritis [Recovering/Resolving]
  - Limb discomfort [Recovering/Resolving]
  - Diarrhoea [Recovering/Resolving]
  - Myalgia [Recovering/Resolving]
